FAERS Safety Report 6327797-8 (Version None)
Quarter: 2009Q3

REPORT INFORMATION
  Report Type: 
  Country: None (occurrence: None)
  Receive Date: 20090824
  Receipt Date: 20090814
  Transmission Date: 20100115
  Serious: Yes (Hospitalization)
  Sender: FDA-Public Use
  Company Number: DAV-AE-FUR-09-003

PATIENT
  Age: 58 Year
  Sex: Male

DRUGS (8)
  1. FUROSEMIDE [Suspect]
     Dosage: 40 MG BID ORALLY
     Route: 048
  2. LEVOFLOXACIN [Concomitant]
  3. LISINOPRIL [Concomitant]
  4. PANTOPRAZOLE SODIUM [Concomitant]
  5. METOPROLOL 25 MG [Concomitant]
  6. ASPIRIN [Concomitant]
  7. REGULAR INSULIN [Concomitant]
  8. GLIPIZIDE [Concomitant]

REACTIONS (2)
  - HYPOGLYCAEMIA [None]
  - INSULIN C-PEPTIDE INCREASED [None]
